FAERS Safety Report 18588724 (Version 1)
Quarter: 2020Q4

REPORT INFORMATION
  Report Type: Spontaneous
  Country: TR (occurrence: TR)
  Receive Date: 20201208
  Receipt Date: 20201208
  Transmission Date: 20210114
  Serious: Yes (Other)
  Sender: FDA-Public Use
  Company Number: TR-SUN PHARMACEUTICAL INDUSTRIES LTD-2020RR-270215

PATIENT
  Age: 61 Year
  Sex: Female

DRUGS (7)
  1. THALIDOMIDE [Suspect]
     Active Substance: THALIDOMIDE
     Indication: PLASMACYTOMA
     Dosage: UNK, DT-PACE CHEMOTHERAPY PROTOCOL
     Route: 065
  2. LENALIDOMIDE [Suspect]
     Active Substance: LENALIDOMIDE
     Indication: PLASMA CELL MYELOMA
     Dosage: 10 MILLIGRAM, UNK
     Route: 065
  3. ETOPOSIDE. [Suspect]
     Active Substance: ETOPOSIDE
     Indication: PLASMACYTOMA
     Dosage: UNK, DT-PACE CHEMOTHERAPY PROTOCOL
     Route: 065
  4. CISPLATIN. [Suspect]
     Active Substance: CISPLATIN
     Indication: PLASMACYTOMA
     Dosage: UNK, DT-PACE CHEMOTHERAPY PROTOCOL
     Route: 065
  5. DEXAMETHASONE. [Suspect]
     Active Substance: DEXAMETHASONE
     Indication: PLASMACYTOMA
     Dosage: UNK, DT-PACE CHEMOTHERAPY PROTOCOL
     Route: 065
  6. DOXORUBICIN [Suspect]
     Active Substance: DOXORUBICIN
     Indication: PLASMACYTOMA
     Dosage: UNK, DT-PACE CHEMOTHERAPY PROTOCOL
     Route: 065
  7. VINCRISTINE [Suspect]
     Active Substance: VINCRISTINE
     Indication: PLASMACYTOMA
     Dosage: UNK, DT-PACE CHEMOTHERAPY PROTOCOL
     Route: 065

REACTIONS (3)
  - Anaemia [Recovering/Resolving]
  - Plasmacytoma [Recovered/Resolved]
  - Therapeutic product effect incomplete [Unknown]
